FAERS Safety Report 6572756-3 (Version None)
Quarter: 2010Q1

REPORT INFORMATION
  Report Type: 
  Country: None (occurrence: None)
  Receive Date: 20100205
  Receipt Date: 20100125
  Transmission Date: 20100710
  Serious: Yes (Other)
  Sender: FDA-Public Use
  Company Number: US-JNJFOC-20100110671

PATIENT
  Age: 30 Year
  Sex: Female
  Weight: 113.4 kg

DRUGS (6)
  1. NUCYNTA [Suspect]
     Indication: ANALGESIC THERAPY
     Route: 048
  2. ZOFRAN [Concomitant]
     Indication: NAUSEA
     Route: 048
  3. PROTONIX [Concomitant]
     Route: 048
  4. CARAFATE [Concomitant]
     Route: 048
  5. VITAMIN [Concomitant]
     Indication: MEDICAL DIET
     Route: 048
  6. LYRICA [Concomitant]
     Indication: NEUROPATHY PERIPHERAL
     Route: 048

REACTIONS (7)
  - ABNORMAL SENSATION IN EYE [None]
  - EAR DISCOMFORT [None]
  - FREQUENT BOWEL MOVEMENTS [None]
  - HEADACHE [None]
  - NAUSEA [None]
  - SENSATION OF PRESSURE [None]
  - VOMITING [None]
